FAERS Safety Report 22141160 (Version 1)
Quarter: 2023Q1

REPORT INFORMATION
  Report Type: Spontaneous
  Country: CA (occurrence: CA)
  Receive Date: 20230327
  Receipt Date: 20230327
  Transmission Date: 20230418
  Serious: Yes (Hospitalization, Other)
  Sender: FDA-Public Use
  Company Number: CA-PFIZER INC-PV202300054537

PATIENT
  Age: 65 Year
  Sex: Female

DRUGS (1)
  1. METHOTREXATE SODIUM [Suspect]
     Active Substance: METHOTREXATE SODIUM
     Indication: Crohn^s disease
     Dosage: 3 PILLS, WEEKLY
     Route: 048

REACTIONS (7)
  - Electrolyte imbalance [Unknown]
  - Loss of consciousness [Unknown]
  - Vomiting [Unknown]
  - Stomatitis [Recovering/Resolving]
  - Nausea [Recovering/Resolving]
  - Aphonia [Unknown]
  - Off label use [Unknown]

NARRATIVE: CASE EVENT DATE: 20230213
